FAERS Safety Report 9375165 (Version 2)
Quarter: 2013Q3

REPORT INFORMATION
  Report Type: Spontaneous
  Country: US (occurrence: US)
  Receive Date: 20130628
  Receipt Date: 20130719
  Transmission Date: 20140515
  Serious: No
  Sender: FDA-Public Use
  Company Number: US-PFIZER INC-2013192080

PATIENT
  Sex: Female

DRUGS (5)
  1. NEURONTIN [Suspect]
     Dosage: UNK
  2. KEFLEX [Suspect]
     Dosage: UNK
  3. DEPAKOTE [Suspect]
     Dosage: UNK
  4. LAMICTAL [Suspect]
     Dosage: UNK
  5. ELAVIL [Suspect]
     Dosage: UNK

REACTIONS (1)
  - No adverse event [Unknown]
